FAERS Safety Report 8225225-9 (Version None)
Quarter: 2012Q1

REPORT INFORMATION
  Report Type: 
  Country: None (occurrence: None)
  Receive Date: 20120321
  Receipt Date: 20120309
  Transmission Date: 20120608
  Serious: Yes (Other)
  Sender: FDA-Public Use
  Company Number: JP-BRISTOL-MYERS SQUIBB COMPANY-16458838

PATIENT
  Age: 70 Year
  Sex: Female

DRUGS (3)
  1. CETUXIMAB [Suspect]
     Indication: GASTRIC CANCER
     Dosage: 5MG/ML INTRAVENOUS INFUSION
     Route: 042
     Dates: start: 20120117
  2. CISPLATIN [Suspect]
     Indication: GASTRIC CANCER
     Dosage: D8
     Route: 042
     Dates: start: 20120125, end: 20120125
  3. TS-1 [Suspect]
     Indication: GASTRIC CANCER
     Dosage: CAPS
     Route: 048
     Dates: start: 20120117

REACTIONS (1)
  - SOFT TISSUE NECROSIS [None]
